FAERS Safety Report 15618955 (Version 1)
Quarter: 2018Q4

REPORT INFORMATION
  Report Type: Spontaneous
  Country: IT (occurrence: IT)
  Receive Date: 20181114
  Receipt Date: 20181114
  Transmission Date: 20190205
  Serious: Yes (Hospitalization, Other)
  Sender: FDA-Public Use
  Company Number: IT-BAXTER-2018BAX027699

PATIENT
  Age: 67 Year
  Sex: Female

DRUGS (2)
  1. PREDNISONE. [Suspect]
     Active Substance: PREDNISONE
     Indication: VASCULITIS
     Dosage: 25 MG DAILY
     Route: 065
  2. ENDOXAN BAXTER [Suspect]
     Active Substance: CYCLOPHOSPHAMIDE
     Indication: VASCULITIS
     Route: 065

REACTIONS (4)
  - Pneumonia viral [Recovered/Resolved]
  - Steroid diabetes [Unknown]
  - Dysphoria [Unknown]
  - Epstein-Barr virus infection [Recovered/Resolved]
